FAERS Safety Report 19942217 (Version 4)
Quarter: 2021Q4

REPORT INFORMATION
  Report Type: Spontaneous
  Country: US (occurrence: US)
  Receive Date: 20211012
  Receipt Date: 20211206
  Transmission Date: 20220303
  Serious: Yes (Hospitalization, Other)
  Sender: FDA-Public Use
  Company Number: US-UROGEN PHARMA LTD.-2021-UGN-000080

PATIENT

DRUGS (5)
  1. JELMYTO [Suspect]
     Active Substance: MITOMYCIN
     Indication: Transitional cell cancer of the renal pelvis and ureter
     Dosage: (INSTILLATION) (07 CC TO LEFT KIDNEY AND 12 CC TO RIGHT KIDNEY)
     Dates: start: 20210903, end: 20210903
  2. JELMYTO [Suspect]
     Active Substance: MITOMYCIN
     Dosage: (INSTILLATION)(10 CC TO LEFT KIDNEY AND 12 CC TO RIGHT KIDNEY)
     Dates: start: 20210910, end: 20210910
  3. JELMYTO [Suspect]
     Active Substance: MITOMYCIN
     Dosage: (INSTILLATION)(10 CC TO LEFT KIDNEY AND 12 CC TO RIGHT KIDNEY)
     Dates: start: 20210917, end: 20210917
  4. JELMYTO [Suspect]
     Active Substance: MITOMYCIN
     Dosage: (INSTILLATION)(10 CC TO LEFT KIDNEY AND 12 CC TO RIGHT KIDNEY)
     Dates: start: 20210924, end: 20210924
  5. JELMYTO [Suspect]
     Active Substance: MITOMYCIN
     Dosage: (INSTILLATION)(10 CC TO LEFT KIDNEY AND 12 CC TO RIGHT KIDNEY)
     Dates: start: 20211008, end: 20211008

REACTIONS (3)
  - Acute kidney injury [Recovered/Resolved]
  - Ureteric obstruction [Recovered/Resolved]
  - Urinary tract infection [Unknown]

NARRATIVE: CASE EVENT DATE: 20210101
